FAERS Safety Report 4683307-2 (Version None)
Quarter: 2005Q2

REPORT INFORMATION
  Report Type: 
  Country: None (occurrence: None)
  Receive Date: 20050602
  Receipt Date: 20050218
  Transmission Date: 20051028
  Serious: No
  Sender: FDA-Public Use
  Company Number: 200510293BWH

PATIENT
  Age: 54 Year
  Sex: Male

DRUGS (9)
  1. LEVITRA [Suspect]
     Indication: ERECTILE DYSFUNCTION
     Dosage: 20 MG, TOTAL DAILY, ORAL
     Route: 048
     Dates: start: 20040101
  2. LEVITRA [Suspect]
     Indication: ERECTILE DYSFUNCTION
     Dosage: 20 MG, TOTAL DAILY, ORAL
     Route: 048
     Dates: start: 20050216
  3. LEVITRA [Suspect]
     Indication: ERECTILE DYSFUNCTION
     Dosage: 20 MG, TOTAL DAILY, ORAL
     Route: 048
     Dates: start: 20050218
  4. COREG [Concomitant]
  5. GLIPIZIDE [Concomitant]
  6. AVANDAMET [Concomitant]
  7. LIPITOR [Concomitant]
  8. NORVASC [Concomitant]
  9. BENICAR HCT [Concomitant]

REACTIONS (1)
  - ACCIDENTAL OVERDOSE [None]
